FAERS Safety Report 9441960 (Version 1)
Quarter: 2013Q3

REPORT INFORMATION
  Report Type: Spontaneous
  Country: US (occurrence: US)
  Receive Date: 20130806
  Receipt Date: 20130806
  Transmission Date: 20140515
  Serious: Yes (Death, Hospitalization, Other)
  Sender: FDA-Public Use
  Company Number: US-JNJFOC-20130715685

PATIENT
  Age: 68 Year
  Sex: Male

DRUGS (7)
  1. INFLIXIMAB, RECOMBINANT [Suspect]
     Indication: CROHN^S DISEASE
     Route: 042
  2. CORTICOSTEROIDS [Suspect]
     Indication: ADRENAL INSUFFICIENCY
     Route: 065
  3. AZATHIOPRINE [Suspect]
     Indication: PRODUCT USED FOR UNKNOWN INDICATION
     Route: 048
  4. BUDESONIDE [Concomitant]
     Route: 048
  5. LEVOTHYROXINE [Concomitant]
     Route: 048
  6. SALBUTAMOL [Concomitant]
     Route: 055
  7. IPRATROPIUM [Concomitant]
     Route: 055

REACTIONS (5)
  - Diabetes mellitus [Unknown]
  - Zygomycosis [Fatal]
  - Lung abscess [Fatal]
  - Pneumonia [Unknown]
  - Pneumocystis jirovecii pneumonia [Unknown]
